FAERS Safety Report 4753607-6 (Version None)
Quarter: 2005Q3

REPORT INFORMATION
  Report Type: 
  Country: None (occurrence: None)
  Receive Date: 20050826
  Receipt Date: 20041028
  Transmission Date: 20060218
  Serious: No
  Sender: FDA-Public Use
  Company Number: US-GLAXOSMITHKLINE-A0531762A

PATIENT
  Age: 70 Year
  Sex: Female

DRUGS (10)
  1. BECONASE [Suspect]
     Dosage: 4SPR TWICE PER DAY
     Route: 045
     Dates: start: 20040622
  2. VENTOLIN [Concomitant]
  3. HUMIBID LA [Concomitant]
  4. CALAN [Concomitant]
  5. MAXZIDE [Concomitant]
  6. PREDNISONE TAB [Concomitant]
  7. K-DUR 10 [Concomitant]
  8. MICRONASE [Concomitant]
  9. MEVACOR [Concomitant]
  10. OXYGEN [Concomitant]

REACTIONS (1)
  - DRUG INEFFECTIVE [None]
